FAERS Safety Report 8600549-1 (Version None)
Quarter: 2012Q3

REPORT INFORMATION
  Report Type: 
  Country: None (occurrence: None)
  Receive Date: 20120808
  Receipt Date: 20120808
  Transmission Date: 20120928
  Serious: Yes (Other)
  Sender: FDA-Public Use
  Company Number: None

PATIENT
  Sex: Female
  Weight: 65.7716 kg

DRUGS (1)
  1. AVELOX [Suspect]
     Indication: TOOTH INFECTION
     Dosage: 400 MG 1 TAB DAILY
     Dates: start: 20120529

REACTIONS (2)
  - INSOMNIA [None]
  - ANXIETY [None]
